FAERS Safety Report 14044766 (Version 1)
Quarter: 2017Q4

REPORT INFORMATION
  Report Type: Report from Study
  Country: BR (occurrence: BR)
  Receive Date: 20171005
  Receipt Date: 20171005
  Transmission Date: 20180321
  Serious: Yes (Hospitalization, Other)
  Sender: FDA-Public Use
  Company Number: BR-UCBSA-2017039392

PATIENT
  Age: 3 Year
  Sex: Female

DRUGS (5)
  1. LEVETIRACETAM. [Suspect]
     Active Substance: LEVETIRACETAM
     Indication: EPILEPSY
     Dosage: 350 MG, 3X/DAY (TID)
     Route: 048
     Dates: start: 20160101
  2. DEPAKENE [Concomitant]
     Active Substance: VALPROIC ACID
  3. FRISIUM [Concomitant]
     Active Substance: CLOBAZAM
     Indication: PRODUCT USED FOR UNKNOWN INDICATION
  4. CANNABIDIOL [Concomitant]
     Active Substance: CANNABIDIOL
     Indication: PRODUCT USED FOR UNKNOWN INDICATION
  5. LEVETIRACETAM. [Suspect]
     Active Substance: LEVETIRACETAM
     Dosage: ALTERED DOSAGE
     Route: 048

REACTIONS (6)
  - Pharyngitis [Unknown]
  - Pyrexia [Unknown]
  - Seizure [Unknown]
  - Intentional product misuse [Unknown]
  - Insomnia [Unknown]
  - Distractibility [Unknown]

NARRATIVE: CASE EVENT DATE: 20160101
